FAERS Safety Report 16558682 (Version 2)
Quarter: 2019Q3

REPORT INFORMATION
  Report Type: Report from Study
  Country: US (occurrence: US)
  Receive Date: 20190711
  Receipt Date: 20190905
  Transmission Date: 20191004
  Serious: Yes (Hospitalization, Other)
  Sender: FDA-Public Use
  Company Number: US-JNJFOC-20190701984

PATIENT
  Age: 53 Year
  Sex: Male

DRUGS (4)
  1. IMBRUVICA [Suspect]
     Active Substance: IBRUTINIB
     Indication: CHRONIC LYMPHOCYTIC LEUKAEMIA
     Dosage: 420 MG, QD
     Route: 048
     Dates: start: 20190604, end: 20190613
  2. IMBRUVICA [Suspect]
     Active Substance: IBRUTINIB
     Indication: CHRONIC LYMPHOCYTIC LEUKAEMIA
  3. IMBRUVICA [Suspect]
     Active Substance: IBRUTINIB
     Indication: CHRONIC LYMPHOCYTIC LEUKAEMIA
     Dosage: 140 MG, QD
     Route: 048
     Dates: start: 20170728
  4. ASA [Suspect]
     Active Substance: ASPIRIN
     Indication: PRODUCT USED FOR UNKNOWN INDICATION
     Dosage: 81 MG, UNK
     Route: 048

REACTIONS (3)
  - Incorrect dose administered [Unknown]
  - Off label use [Unknown]
  - Haemothorax [Recovered/Resolved]

NARRATIVE: CASE EVENT DATE: 20170728
